FAERS Safety Report 7230005-7 (Version None)
Quarter: 2011Q1

REPORT INFORMATION
  Report Type: 
  Country: None (occurrence: None)
  Receive Date: 20110117
  Receipt Date: 20110114
  Transmission Date: 20110831
  Serious: Yes (Hospitalization)
  Sender: FDA-Public Use
  Company Number: GXKR2010DE11128

PATIENT
  Age: 71 Year
  Sex: Female
  Weight: 59.4 kg

DRUGS (6)
  1. DOXEPIN HCL [Suspect]
     Indication: SLEEP DISORDER
     Dosage: 100 MG, PRN
     Route: 048
     Dates: start: 20090101, end: 20100805
  2. VIANI [Concomitant]
     Indication: ASTHMA
     Dosage: 1 DF, TID
  3. ICAPS LUTEIN AND ZEAXANTHIN [Concomitant]
     Indication: MACULAR DEGENERATION
     Dosage: 10 MG, QD
     Route: 048
     Dates: start: 20100101
  4. BISOPROLOL [Suspect]
     Indication: ATRIAL FIBRILLATION
     Dosage: 2.5 MG, QD
     Route: 048
     Dates: start: 20080101, end: 20100818
  5. FALITHROM [Suspect]
     Indication: CEREBRAL INFARCTION
     Dosage: 2.14 MG, QD
     Route: 048
     Dates: start: 19970101, end: 20100810
  6. SIMVADURA [Suspect]
     Indication: HYPERCHOLESTEROLAEMIA
     Dosage: 20 MG, QD
     Route: 048
     Dates: start: 20080101, end: 20100811

REACTIONS (7)
  - HEPATITIS TOXIC [None]
  - URINE COLOUR ABNORMAL [None]
  - ABDOMINAL DISTENSION [None]
  - FAECES DISCOLOURED [None]
  - DECREASED APPETITE [None]
  - FATIGUE [None]
  - HEPATIC ENZYME INCREASED [None]
